FAERS Safety Report 7049994-9 (Version None)
Quarter: 2010Q4

REPORT INFORMATION
  Report Type: 
  Country: None (occurrence: None)
  Receive Date: 20101018
  Receipt Date: 20101007
  Transmission Date: 20110411
  Serious: Yes (Hospitalization)
  Sender: FDA-Public Use
  Company Number: US-US-EMD SERONO, INC.-7020779

PATIENT
  Sex: Male

DRUGS (4)
  1. REBIF [Suspect]
     Indication: MULTIPLE SCLEROSIS
     Route: 058
     Dates: start: 20091007
  2. NEURONTIN [Concomitant]
     Indication: CONVULSION
  3. BACLOFEN [Concomitant]
     Indication: MUSCLE SPASMS
  4. TIZANIDINE HCL [Concomitant]
     Indication: MUSCLE SPASMS

REACTIONS (5)
  - BLOOD PRESSURE INCREASED [None]
  - CONVULSION [None]
  - DEMYELINATION [None]
  - GAIT DISTURBANCE [None]
  - PAIN [None]
